FAERS Safety Report 4551721-1 (Version None)
Quarter: 2005Q1

REPORT INFORMATION
  Report Type: 
  Country: None (occurrence: None)
  Receive Date: 20050113
  Receipt Date: 20040820
  Transmission Date: 20050727
  Serious: Yes (Hospitalization)
  Sender: FDA-Public Use
  Company Number: GB-BRISTOL-MYERS SQUIBB COMPANY-12677894

PATIENT
  Age: 73 Year
  Sex: Male
  Weight: 67 kg

DRUGS (7)
  1. CISPLATIN [Suspect]
     Indication: BLADDER CANCER
     Dosage: THERAPY COMMENCED: 13-MAY-2004; CUMULATIVE DOSE: 375 MG
     Route: 042
     Dates: start: 20040623, end: 20040623
  2. PACLITAXEL [Suspect]
     Indication: BLADDER CANCER
     Dosage: THERAPY COMMENCED: 13-MAY-2004; CUMULATIVE DOSE: 720 MG
     Route: 042
     Dates: start: 20040623, end: 20040623
  3. GEMCITABINE [Suspect]
     Indication: BLADDER CANCER
     Dosage: THERAPY COMMENCED: 13-MAY-2004; CUMULATIVE DOSE: 8.930 GRAMS
     Route: 042
     Dates: start: 20040623, end: 20040623
  4. ONDANSETRON [Concomitant]
  5. DEXAMETHASONE [Concomitant]
  6. SENNA [Concomitant]
  7. LANSOPRAZOLE [Concomitant]

REACTIONS (6)
  - ANOREXIA [None]
  - BLOOD POTASSIUM DECREASED [None]
  - BLOOD SODIUM DECREASED [None]
  - CIRCULATORY COLLAPSE [None]
  - DIZZINESS [None]
  - MALAISE [None]
